FAERS Safety Report 9880225 (Version 2)
Quarter: 2014Q1

REPORT INFORMATION
  Report Type: Spontaneous
  Country: US (occurrence: US)
  Receive Date: 20140207
  Receipt Date: 20140224
  Transmission Date: 20141002
  Serious: No
  Sender: FDA-Public Use
  Company Number: US-BIOGENIDEC-2014BI009544

PATIENT
  Age: 48 Year
  Sex: Female

DRUGS (10)
  1. TECFIDERA [Suspect]
     Indication: MULTIPLE SCLEROSIS
     Route: 048
     Dates: start: 20140103
  2. TECFIDERA [Suspect]
     Indication: MULTIPLE SCLEROSIS
     Route: 048
     Dates: start: 201401
  3. CITALOPRAM HBR [Concomitant]
  4. ACYCLOVIR [Concomitant]
  5. HYDROXYZINE [Concomitant]
  6. METHYLPHENIDATE [Concomitant]
  7. VITAMIN C [Concomitant]
  8. VITAMIN D3 [Concomitant]
  9. IRON [Concomitant]
  10. VITAMIN B COMPLEX [Concomitant]

REACTIONS (6)
  - Hyperaesthesia [Unknown]
  - Fatigue [Unknown]
  - Feeling jittery [Unknown]
  - Intentional underdose [Unknown]
  - Flushing [Not Recovered/Not Resolved]
  - Erythema [Unknown]
